FAERS Safety Report 21897524 (Version 1)
Quarter: 2023Q1

REPORT INFORMATION
  Report Type: Spontaneous
  Country: DE (occurrence: DE)
  Receive Date: 20230123
  Receipt Date: 20230123
  Transmission Date: 20230418
  Serious: Yes (Congenital Anomaly, Other)
  Sender: FDA-Public Use
  Company Number: DE-EMBRYOTOX-202102187

PATIENT
  Age: 1 Day
  Sex: Female
  Weight: 2.894 kg

DRUGS (6)
  1. ESCITALOPRAM [Suspect]
     Active Substance: ESCITALOPRAM OXALATE
     Indication: Foetal exposure during pregnancy
     Dosage: (MATERNAL DOES: 10 MG, QD) FROM 10 JAN 2021 TO 08 OCT 2021
     Route: 064
  2. DOXEPIN [Suspect]
     Active Substance: DOXEPIN
     Indication: Foetal exposure during pregnancy
     Dosage: (MATERNAL DOES: 50 MG, QD) FROM 10 JAN 2021 TO 08 OCT 2021
     Route: 064
  3. PRAMIPEXOLE [Suspect]
     Active Substance: PRAMIPEXOLE
     Indication: Foetal exposure during pregnancy
     Dosage: 180 UG, QD (0.18 [MG/D ] )
     Route: 064
  4. BOOSTRIX [Concomitant]
     Active Substance: TETANUS TOXOID, REDUCED DIPHTHERIA TOXOID AND ACELLULAR PERTUSSIS VACCINE, ADSORBED ANTIGENS
     Indication: Foetal exposure during pregnancy
     Dosage: (MATERNAL DOES: UNK) FROM 25 AUG 2021
     Route: 064
  5. BENSERAZIDE\LEVODOPA [Concomitant]
     Active Substance: BENSERAZIDE\LEVODOPA
     Indication: Foetal exposure during pregnancy
     Dosage: (MATERNAL DOES: 100 MG, QD) FROM 10 JAN 2021 TO 10 MAR 2021
     Route: 064
  6. FOLIC ACID [Concomitant]
     Active Substance: FOLIC ACID
     Indication: Foetal exposure during pregnancy
     Dosage: UNK
     Route: 064

REACTIONS (2)
  - Microcephaly [Unknown]
  - Foetal exposure during pregnancy [Unknown]

NARRATIVE: CASE EVENT DATE: 20211001
